FAERS Safety Report 5075702-7 (Version None)
Quarter: 2006Q3

REPORT INFORMATION
  Report Type: 
  Country: None (occurrence: None)
  Receive Date: 20060804
  Receipt Date: 20060726
  Transmission Date: 20061208
  Serious: Yes (Death, Hospitalization)
  Sender: FDA-Public Use
  Company Number: HQWYE388526JUL06

PATIENT
  Age: 80 Year
  Sex: Male

DRUGS (1)
  1. CORDARONE [Suspect]
     Dosage: 200 MG 3X PER 1 DAY ORAL
     Route: 048
     Dates: start: 20060401, end: 20060101

REACTIONS (6)
  - CARDIAC FAILURE [None]
  - HEPATOCELLULAR DAMAGE [None]
  - LIVER DISORDER [None]
  - LUNG DISORDER [None]
  - PNEUMONIA [None]
  - PULMONARY OEDEMA [None]
